FAERS Safety Report 12474078 (Version 2)
Quarter: 2016Q3

REPORT INFORMATION
  Report Type: Spontaneous
  Country: JP (occurrence: JP)
  Receive Date: 20160616
  Receipt Date: 20160704
  Transmission Date: 20161109
  Serious: Yes (Death, Life-Threatening, Other)
  Sender: FDA-Public Use
  Company Number: PHHY2013JP172053

PATIENT
  Age: 77 Year
  Sex: Male
  Weight: 62 kg

DRUGS (5)
  1. PAZOPANIB [Suspect]
     Active Substance: PAZOPANIB
     Dosage: 200 MG, QD
     Route: 048
     Dates: start: 20130207, end: 20130527
  2. PAZOPANIB [Suspect]
     Active Substance: PAZOPANIB
     Dosage: 400 MG, QD
     Route: 048
     Dates: start: 20130101, end: 20130114
  3. PAZOPANIB [Suspect]
     Active Substance: PAZOPANIB
     Dosage: 200 MG, QD
     Route: 048
     Dates: start: 20130720, end: 20130728
  4. PAZOPANIB [Suspect]
     Active Substance: PAZOPANIB
     Indication: DEDIFFERENTIATED LIPOSARCOMA
     Dosage: 600 MG, QD
     Route: 048
     Dates: start: 20121219, end: 20121224
  5. PAZOPANIB [Suspect]
     Active Substance: PAZOPANIB
     Dosage: 200 MG, QD
     Route: 048
     Dates: start: 20130612, end: 20130623

REACTIONS (9)
  - Decreased appetite [Not Recovered/Not Resolved]
  - Fatigue [Unknown]
  - Malignant neoplasm progression [Fatal]
  - Platelet count decreased [Not Recovered/Not Resolved]
  - Liposarcoma recurrent [Fatal]
  - Malaise [Recovering/Resolving]
  - Pyrexia [Recovering/Resolving]
  - Metastases to lung [Fatal]
  - Therapeutic response decreased [Unknown]

NARRATIVE: CASE EVENT DATE: 201212
